FAERS Safety Report 10212940 (Version 2)
Quarter: 2014Q2

REPORT INFORMATION
  Report Type: Report from Study
  Country: CA (occurrence: CA)
  Receive Date: 20140602
  Receipt Date: 20140618
  Transmission Date: 20141212
  Serious: Yes (Other)
  Sender: FDA-Public Use
  Company Number: PHHY2014CA067224

PATIENT
  Age: 15 Year
  Sex: Female

DRUGS (2)
  1. CLOZARIL [Suspect]
     Indication: PSYCHOTIC DISORDER
     Dosage: 250 MG, DAILY
     Route: 048
     Dates: start: 201312
  2. VENLAFAXINE [Concomitant]
     Dosage: 75 MG
     Route: 048
     Dates: start: 20140513

REACTIONS (4)
  - Hypothermia [Unknown]
  - Feeling cold [Unknown]
  - Temperature intolerance [Not Recovered/Not Resolved]
  - Tachycardia [Unknown]
